FAERS Safety Report 16898111 (Version 2)
Quarter: 2019Q4

REPORT INFORMATION
  Report Type: Spontaneous
  Country: IT (occurrence: IT)
  Receive Date: 20191009
  Receipt Date: 20191028
  Transmission Date: 20200122
  Serious: Yes (Other)
  Sender: FDA-Public Use
  Company Number: IT-PFIZER INC-2019433102

PATIENT
  Age: 7 Year
  Sex: Female
  Weight: 17 kg

DRUGS (5)
  1. DINTOINA [Suspect]
     Active Substance: PHENYTOIN SODIUM
     Indication: EPILEPSY
     Dosage: 2 DF, 1X/DAY
     Route: 048
     Dates: start: 20190101, end: 20190904
  2. LAMICTAL [Suspect]
     Active Substance: LAMOTRIGINE
     Indication: EPILEPSY
     Dosage: 175 MG, 1X/DAY
     Route: 048
     Dates: start: 20190101, end: 20190904
  3. EUTIROX [Concomitant]
     Active Substance: LEVOTHYROXINE SODIUM
     Dosage: 1 DF, UNK
     Route: 048
  4. DEPAMAG [Concomitant]
     Active Substance: VALPROATE MAGNESIUM
     Dosage: 1500 MG, UNK
     Route: 048
  5. TAVOR (LORAZEPAM) [Suspect]
     Active Substance: LORAZEPAM
     Indication: EPILEPSY
     Dosage: 2.5 MG, 1X/DAY
     Route: 048
     Dates: start: 20190101, end: 20190904

REACTIONS (4)
  - Off label use [Unknown]
  - Product use issue [Unknown]
  - Gastritis [Recovering/Resolving]
  - Vomiting [Recovering/Resolving]

NARRATIVE: CASE EVENT DATE: 20190101
